FAERS Safety Report 21447264 (Version 1)
Quarter: 2022Q4

REPORT INFORMATION
  Report Type: Spontaneous
  Country: ES (occurrence: ES)
  Receive Date: 20221012
  Receipt Date: 20221012
  Transmission Date: 20230113
  Serious: Yes (Other)
  Sender: FDA-Public Use
  Company Number: ES-NOVARTISPH-NVSC2022ES227018

PATIENT
  Age: 41 Year
  Sex: Female

DRUGS (4)
  1. CLARITHROMYCIN [Suspect]
     Active Substance: CLARITHROMYCIN
     Indication: Amniotic cavity infection
     Dosage: UNK, UNKNOWN
     Route: 048
  2. PIPERACILLIN SODIUM\TAZOBACTAM SODIUM [Suspect]
     Active Substance: PIPERACILLIN SODIUM\TAZOBACTAM SODIUM
     Indication: Amniotic cavity infection
     Dosage: UNK, UNKNOWN
     Route: 042
  3. ATOSIBAN [Suspect]
     Active Substance: ATOSIBAN
     Indication: Uterine hypertonus
     Dosage: UNK
     Route: 040
  4. INSULIN NOS [Suspect]
     Active Substance: INSULIN NOS
     Indication: Gestational diabetes
     Dosage: UNK, UNKNOWN
     Route: 065

REACTIONS (3)
  - Premature delivery [Unknown]
  - Delivery [Unknown]
  - Maternal exposure during pregnancy [Unknown]
